FAERS Safety Report 16228476 (Version 1)
Quarter: 2019Q2

REPORT INFORMATION
  Report Type: Spontaneous
  Country: US (occurrence: US)
  Receive Date: 20190318
  Receipt Date: 20190318
  Transmission Date: 20190711
  Serious: Yes (Life-Threatening)
  Sender: FDA-Public Use
  Company Number: None

PATIENT
  Age: 67 Year
  Sex: Male
  Weight: 81.65 kg

DRUGS (9)
  1. SIMVASTATIN. [Concomitant]
     Active Substance: SIMVASTATIN
  2. TRAZODONE [Concomitant]
     Active Substance: TRAZODONE HYDROCHLORIDE
  3. ONE-A-DAY NOS [Concomitant]
     Active Substance: MINERALS\VITAMINS
  4. NAPROXEN. [Concomitant]
     Active Substance: NAPROXEN
  5. HYDROCODONE 7.5 ACETAMINOPHEN 325 MG [Suspect]
     Active Substance: ACETAMINOPHEN\HYDROCODONE
     Indication: BACK DISORDER
     Dosage: ?          QUANTITY:7.5 MG MILLIGRAM(S);?
     Route: 048
     Dates: start: 20190203, end: 20190303
  6. LEVOTHYROXINE. [Concomitant]
     Active Substance: LEVOTHYROXINE
  7. TRAMADOL. [Concomitant]
     Active Substance: TRAMADOL
  8. LIQUID B-12 [Concomitant]
  9. FISH OIL [Concomitant]
     Active Substance: FISH OIL

REACTIONS (6)
  - Blood pressure increased [None]
  - Hypoaesthesia [None]
  - Pharyngeal swelling [None]
  - Palpitations [None]
  - Inadequate analgesia [None]
  - Dysphagia [None]

NARRATIVE: CASE EVENT DATE: 20190303
